FAERS Safety Report 15232022 (Version 2)
Quarter: 2018Q4

REPORT INFORMATION
  Report Type: Spontaneous
  Country: IT (occurrence: IT)
  Receive Date: 20180802
  Receipt Date: 20181006
  Transmission Date: 20190204
  Serious: Yes (Hospitalization)
  Sender: FDA-Public Use
  Company Number: IT-AUROBINDO-AUR-APL-2018-038586

PATIENT
  Age: 45 Year
  Sex: Male

DRUGS (8)
  1. TALOFEN [Suspect]
     Active Substance: PROMAZINE HYDROCHLORIDE
     Indication: INTENTIONAL SELF-INJURY
     Dosage: 100 GTT, (IN TOTAL)
     Route: 048
     Dates: start: 20180501, end: 20180501
  2. OLANZAPINE TABLET [Suspect]
     Active Substance: OLANZAPINE
     Indication: INTENTIONAL SELF-INJURY
     Dosage: IN TOTAL
     Route: 048
     Dates: start: 20180501, end: 20180501
  3. FLUNOX [Suspect]
     Active Substance: FLURAZEPAM HYDROCHLORIDE
     Indication: INTENTIONAL SELF-INJURY
     Dosage: 300 MILLIGRAM, (IN TOTAL)
     Route: 048
     Dates: start: 20180501, end: 20180501
  4. STILNOX [Suspect]
     Active Substance: ZOLPIDEM TARTRATE
     Indication: INTENTIONAL SELF-INJURY
     Dosage: IN TOTAL
     Route: 048
     Dates: start: 20180501, end: 20180501
  5. DAPAROX                            /00830803/ [Suspect]
     Active Substance: PAROXETINE MESYLATE
     Indication: INTENTIONAL SELF-INJURY
     Dosage: 200 MILLIGRAM, (IN TOTAL)
     Route: 048
     Dates: start: 20180501, end: 20180501
  6. ZOLPIDEM [Suspect]
     Active Substance: ZOLPIDEM\ZOLPIDEM TARTRATE
     Indication: INTENTIONAL SELF-INJURY
     Dosage: 200 MILLIGRAM, (IN TOTAL)
     Route: 048
     Dates: start: 20180501, end: 20180501
  7. BROMAZEPAM TABLET [Suspect]
     Active Substance: BROMAZEPAM
     Indication: INTENTIONAL SELF-INJURY
     Dosage: 15 MILLIGRAM, (IN TOTAL)
     Route: 048
     Dates: start: 20180501, end: 20180501
  8. AUGMENTIN [Suspect]
     Active Substance: AMOXICILLIN\CLAVULANATE POTASSIUM
     Indication: INTENTIONAL SELF-INJURY
     Dosage: 8 DOSAGE FORM, (IN TOTAL)
     Route: 048
     Dates: start: 20180501, end: 20180501

REACTIONS (1)
  - Sopor [Unknown]

NARRATIVE: CASE EVENT DATE: 20180501
